FAERS Safety Report 9954019 (Version 1)
Quarter: 2014Q1

REPORT INFORMATION
  Report Type: Spontaneous
  Country: US (occurrence: US)
  Receive Date: 20140304
  Receipt Date: 20140304
  Transmission Date: 20141002
  Serious: Yes (Other)
  Sender: FDA-Public Use
  Company Number: PHHY2014US024804

PATIENT
  Age: 78 Year
  Sex: Male

DRUGS (2)
  1. FLUORESCEIN [Suspect]
  2. RANIBIZUMAB [Concomitant]
     Indication: POLYPOIDAL CHOROIDAL VASCULOPATHY
     Dosage: 0.5 MG, ONCE EVERY 30 DAYS (?7 DAYS) FOR 12 MONTHS
     Route: 031

REACTIONS (1)
  - Drug hypersensitivity [Unknown]
